FAERS Safety Report 15374383 (Version 2)
Quarter: 2018Q3

REPORT INFORMATION
  Report Type: Spontaneous
  Country: US (occurrence: US)
  Receive Date: 20180912
  Receipt Date: 20180917
  Transmission Date: 20181010
  Serious: No
  Sender: FDA-Public Use
  Company Number: US-ELI_LILLY_AND_COMPANY-US201809004320

PATIENT
  Sex: Male

DRUGS (1)
  1. HUMATROPE [Suspect]
     Active Substance: SOMATROPIN
     Indication: PRODUCT USED FOR UNKNOWN INDICATION
     Dosage: 1.00 MG/M2, UNKNOWN
     Route: 058

REACTIONS (3)
  - White blood cell count decreased [Not Recovered/Not Resolved]
  - Nasopharyngitis [Recovered/Resolved]
  - Neutrophil count decreased [Unknown]
